FAERS Safety Report 7524693-5 (Version None)
Quarter: 2011Q2

REPORT INFORMATION
  Report Type: 
  Country: None (occurrence: None)
  Receive Date: 20110525
  Receipt Date: 20110504
  Transmission Date: 20111010
  Serious: Yes (Hospitalization)
  Sender: FDA-Public Use
  Company Number: 1000017837

PATIENT
  Age: 87 Year
  Sex: Male

DRUGS (6)
  1. PANTOPRAZOLE SODIUM [Suspect]
     Dosage: 40 MG, ORAL
     Route: 048
     Dates: end: 20101103
  2. ACETAMINOPHEN [Suspect]
     Dosage: 3 GRAM (1 GM, 3 IN 1 D), ORAL
     Route: 048
     Dates: end: 20101130
  3. RAMIPRIL [Suspect]
     Dosage: 10 MG (10 MG, 1 IN 1 D)
     Dates: end: 20101103
  4. DICLOFENAC SODIUM [Suspect]
     Dosage: 1 DOSAGE FORMS, AS REQUIRED), CUTANEOUS
     Route: 003
     Dates: end: 20101103
  5. ESCITALOPRAM OXALATE [Suspect]
     Dosage: 5 MG, AS REQUIRED, ORAL
     Route: 048
     Dates: end: 20101103
  6. NIFEDIPINE [Suspect]
     Dosage: 30 MG (3 MG, 1 IN 1 D), ORAL
     Route: 048
     Dates: end: 20101103

REACTIONS (2)
  - PANCYTOPENIA [None]
  - BONE MARROW FAILURE [None]
